FAERS Safety Report 5836510-X (Version None)
Quarter: 2008Q3

REPORT INFORMATION
  Report Type: 
  Country: None (occurrence: None)
  Receive Date: 20080806
  Receipt Date: 20080806
  Transmission Date: 20090109
  Serious: Yes (Life-Threatening, Hospitalization)
  Sender: FDA-Public Use
  Company Number: None

PATIENT
  Age: 58 Year

DRUGS (1)
  1. PREGABALIN [Suspect]
     Indication: PAIN
     Dosage: 150 MG TID PO
     Route: 048
     Dates: start: 20051122, end: 20080101

REACTIONS (3)
  - COUGH [None]
  - PULMONARY FIBROSIS [None]
  - WHEEZING [None]
